FAERS Safety Report 9685045 (Version 1)
Quarter: 2013Q4

REPORT INFORMATION
  Report Type: Report from Study
  Country: CA (occurrence: CA)
  Receive Date: 20131113
  Receipt Date: 20131113
  Transmission Date: 20140711
  Serious: Yes (Other)
  Sender: FDA-Public Use
  Company Number: CA-JNJFOC-20131104139

PATIENT
  Sex: Male
  Weight: 57 kg

DRUGS (5)
  1. REMICADE [Suspect]
     Indication: ANKYLOSING SPONDYLITIS
     Dosage: THERAPY DURATION WAS 2 HOURS
     Route: 042
     Dates: start: 20121228
  2. COSOPT [Concomitant]
     Route: 065
  3. PREDNISOLONE [Concomitant]
     Route: 065
  4. ENTOCORT [Concomitant]
     Dosage: AS NECESSARY
     Route: 065
  5. MELOXICAM [Concomitant]
     Route: 048

REACTIONS (1)
  - Intraocular pressure increased [Unknown]
